FAERS Safety Report 9348148 (Version 2)
Quarter: 2014Q2

REPORT INFORMATION
  Report Type: Report from Study
  Country: US (occurrence: US)
  Receive Date: 20130614
  Receipt Date: 20140523
  Transmission Date: 20141212
  Serious: Yes (Other)
  Sender: FDA-Public Use
  Company Number: US-BAYER-2013-072883

PATIENT
  Age: 10 Year
  Sex: Female

DRUGS (9)
  1. SORAFENIB (RAF KINASE INHIBITOR) [Suspect]
     Indication: ASTROCYTOMA, LOW GRADE
     Dosage: UNK UNK, BID
  2. SORAFENIB (RAF KINASE INHIBITOR) [Suspect]
     Indication: ASTROCYTOMA, LOW GRADE
     Dosage: 110 MG/M2, BID
     Route: 048
  3. SORAFENIB (RAF KINASE INHIBITOR) [Suspect]
     Indication: ASTROCYTOMA, LOW GRADE
     Dosage: 150 MG, BID
     Route: 048
  4. SORAFENIB (RAF KINASE INHIBITOR) [Suspect]
     Indication: ASTROCYTOMA, LOW GRADE
     Dosage: 165 MG/M2, BID
     Route: 048
  5. SORAFENIB (RAF KINASE INHIBITOR) [Suspect]
     Indication: ASTROCYTOMA, LOW GRADE
     Dosage: 150 MG, BID
     Route: 048
  6. SORAFENIB (RAF KINASE INHIBITOR) [Suspect]
     Indication: ASTROCYTOMA, LOW GRADE
     Dosage: 165 MG/M2, BID
     Route: 048
  7. SORAFENIB (RAF KINASE INHIBITOR) [Suspect]
     Indication: ASTROCYTOMA, LOW GRADE
     Dosage: 110 MG/M2, BID
     Route: 048
  8. SORAFENIB (RAF KINASE INHIBITOR) [Suspect]
     Indication: ASTROCYTOMA, LOW GRADE
     Dosage: 165 MG/M2, BID
     Route: 048
  9. SORAFENIB (RAF KINASE INHIBITOR) [Suspect]
     Indication: ASTROCYTOMA, LOW GRADE
     Dosage: 220 MG/M2, BID
     Route: 048

REACTIONS (20)
  - Neoplasm progression [None]
  - Anal haemorrhage [Recovered/Resolved]
  - Aspartate aminotransferase increased [Recovered/Resolved]
  - Unevaluable event [Recovered/Resolved]
  - Hyponatraemia [Recovered/Resolved]
  - Alanine aminotransferase increased [Recovered/Resolved]
  - Aspartate aminotransferase increased [Recovered/Resolved]
  - Neutrophil count decreased [Not Recovered/Not Resolved]
  - Erythema multiforme [Recovered/Resolved]
  - Epistaxis [Recovered/Resolved]
  - Upper respiratory tract infection [None]
  - Skin ulcer [Recovered/Resolved]
  - Conjunctivitis [Recovered/Resolved]
  - Cough [Recovered/Resolved]
  - Diarrhoea [Recovered/Resolved]
  - Dry skin [Recovered/Resolved]
  - Rash [Recovered/Resolved]
  - Decreased appetite [Recovered/Resolved]
  - Rash [Recovered/Resolved]
  - Palmar-plantar erythrodysaesthesia syndrome [Not Recovered/Not Resolved]
